FAERS Safety Report 5376751-1 (Version None)
Quarter: 2007Q3

REPORT INFORMATION
  Report Type: 
  Country: None (occurrence: None)
  Receive Date: 20070703
  Receipt Date: 20070625
  Transmission Date: 20080115
  Serious: Yes (Other)
  Sender: FDA-Public Use
  Company Number: PHBS2007JP10264

PATIENT
  Sex: Female

DRUGS (1)
  1. AREDIA [Suspect]
     Indication: METASTASES TO BONE
     Dates: start: 20030101

REACTIONS (4)
  - FISTULA [None]
  - OSTEOMYELITIS [None]
  - SECONDARY SEQUESTRUM [None]
  - TOOTH EXTRACTION [None]
